FAERS Safety Report 7114224-6 (Version None)
Quarter: 2010Q4

REPORT INFORMATION
  Report Type: 
  Country: None (occurrence: None)
  Receive Date: 20101119
  Receipt Date: 20101108
  Transmission Date: 20110411
  Serious: Yes (Hospitalization, Other)
  Sender: FDA-Public Use
  Company Number: US-BAYER-201029476NA

PATIENT
  Age: 31 Year
  Sex: Female
  Weight: 78 kg

DRUGS (7)
  1. YAZ [Suspect]
     Indication: ORAL CONTRACEPTION
     Route: 048
     Dates: start: 20010201, end: 20090701
  2. SINGULAIR [Concomitant]
     Indication: ASTHMA
     Dosage: TOTAL DAILY DOSE: 10 MG  UNIT DOSE: 10 MG
     Route: 048
     Dates: start: 20060101
  3. PRILOSEC [Concomitant]
     Indication: GASTROOESOPHAGEAL REFLUX DISEASE
     Dosage: TOTAL DAILY DOSE: 20 MG  UNIT DOSE: 20 MG
     Route: 048
     Dates: start: 20080401
  4. FLEXERIL [Concomitant]
     Dosage: TOTAL DAILY DOSE: 20 MG  UNIT DOSE: 10 MG
     Route: 048
     Dates: start: 20080401
  5. COLACE [Concomitant]
     Indication: CONSTIPATION PROPHYLAXIS
     Route: 048
  6. CENOGEN-OB [Concomitant]
     Indication: VITAMIN SUPPLEMENTATION
     Dosage: 06 MG-1 MG CAP DAILY
     Route: 048
  7. WELLBUTRIN XL [Concomitant]
     Indication: EX-TOBACCO USER
     Dosage: 150 MG 24 HR TAB
     Route: 048

REACTIONS (4)
  - ABDOMINAL PAIN [None]
  - CHOLECYSTITIS ACUTE [None]
  - CHOLELITHIASIS [None]
  - THROMBOSIS [None]
